FAERS Safety Report 14269169 (Version 3)
Quarter: 2020Q3

REPORT INFORMATION
  Report Type: Report from Study
  Country: GB (occurrence: GB)
  Receive Date: 20171211
  Receipt Date: 20171229
  Transmission Date: 20201104
  Serious: Yes (Hospitalization)
  Sender: FDA-Public Use
  Company Number: GB-PFIZER INC-2017513570

PATIENT
  Age: 64 Year
  Sex: Female
  Weight: 64.2 kg

DRUGS (3)
  1. FULVESTRANT. [Suspect]
     Active Substance: FULVESTRANT
     Indication: BREAST CANCER METASTATIC
     Dosage: 500 MG, MONTHLY
     Route: 030
     Dates: start: 20170804, end: 20171027
  2. TASELISIB. [Suspect]
     Active Substance: TASELISIB
     Indication: BREAST CANCER METASTATIC
     Dosage: 2 MG, DAILY
     Route: 048
     Dates: start: 20170804, end: 20171118
  3. PALBOCICLIB [Suspect]
     Active Substance: PALBOCICLIB
     Indication: BREAST CANCER METASTATIC
     Dosage: 100 MG, DAILY
     Route: 048
     Dates: start: 20170804, end: 20171118

REACTIONS (1)
  - Pneumonitis [Recovering/Resolving]

NARRATIVE: CASE EVENT DATE: 20171122
